FAERS Safety Report 15205720 (Version 1)
Quarter: 2018Q3

REPORT INFORMATION
  Report Type: Spontaneous
  Country: US (occurrence: US)
  Receive Date: 20180727
  Receipt Date: 20180727
  Transmission Date: 20181010
  Serious: No
  Sender: FDA-Public Use
  Company Number: US-TEVA-2018-US-931846

PATIENT
  Sex: Male

DRUGS (1)
  1. ETODOLAC. [Suspect]
     Active Substance: ETODOLAC
     Indication: OSTEOARTHRITIS
     Route: 065

REACTIONS (1)
  - Drug effect incomplete [Unknown]
